FAERS Safety Report 12980659 (Version 1)
Quarter: 2016Q4

REPORT INFORMATION
  Report Type: Spontaneous
  Country: US (occurrence: US)
  Receive Date: 20161128
  Receipt Date: 20161128
  Transmission Date: 20170207
  Serious: No
  Sender: FDA-Public Use
  Company Number: US-B.I. PHARMACEUTICALS,INC./RIDGEFIELD-2016-BI-080645

PATIENT
  Age: 65 Year
  Sex: Male

DRUGS (4)
  1. JARDIANCE [Suspect]
     Active Substance: EMPAGLIFLOZIN
     Indication: TYPE 2 DIABETES MELLITUS
     Dates: start: 2015
  2. JARDIANCE [Suspect]
     Active Substance: EMPAGLIFLOZIN
     Route: 048
  3. JARDIANCE [Suspect]
     Active Substance: EMPAGLIFLOZIN
     Route: 048
     Dates: start: 2016, end: 2016
  4. JARDIANCE [Suspect]
     Active Substance: EMPAGLIFLOZIN
     Dates: start: 2016, end: 201610

REACTIONS (4)
  - Renal failure [Unknown]
  - Renal impairment [Unknown]
  - Fall [Unknown]
  - Injury [Not Recovered/Not Resolved]

NARRATIVE: CASE EVENT DATE: 2016
